FAERS Safety Report 23526228 (Version 2)
Quarter: 2024Q1

REPORT INFORMATION
  Report Type: Spontaneous
  Country: TR (occurrence: TR)
  Receive Date: 20240215
  Receipt Date: 20240219
  Transmission Date: 20240410
  Serious: Yes (Hospitalization, Other)
  Sender: FDA-Public Use
  Company Number: TR-002147023-NVSC2024TR031874

PATIENT
  Age: 9 Year
  Sex: Female

DRUGS (2)
  1. ILARIS [Suspect]
     Active Substance: CANAKINUMAB
     Indication: Pyogenic sterile arthritis pyoderma gangrenosum and acne syndrome
     Dosage: UNK UNK, QMO
     Route: 065
  2. ILARIS [Suspect]
     Active Substance: CANAKINUMAB
     Indication: Familial amyloidosis

REACTIONS (2)
  - Pyogenic sterile arthritis pyoderma gangrenosum and acne syndrome [Unknown]
  - Off label use [Unknown]
